FAERS Safety Report 19779033 (Version 3)
Quarter: 2021Q4

REPORT INFORMATION
  Report Type: Spontaneous
  Country: US (occurrence: US)
  Receive Date: 20210902
  Receipt Date: 20211021
  Transmission Date: 20220303
  Serious: No
  Sender: FDA-Public Use
  Company Number: US-PFIZER INC-2021531909

PATIENT
  Sex: Male

DRUGS (1)
  1. SOMAVERT [Suspect]
     Active Substance: PEGVISOMANT
     Dosage: UNK, DAILY
     Route: 058
     Dates: start: 2020

REACTIONS (6)
  - Injection site irritation [Unknown]
  - Product dose omission issue [Unknown]
  - Injection site pain [Unknown]
  - Injection site bruising [Unknown]
  - Injury associated with device [Unknown]
  - Syringe issue [Unknown]

NARRATIVE: CASE EVENT DATE: 20200101
